FAERS Safety Report 23941379 (Version 1)
Quarter: 2024Q2

REPORT INFORMATION
  Report Type: Spontaneous
  Country: SE (occurrence: SE)
  Receive Date: 20240605
  Receipt Date: 20240605
  Transmission Date: 20240716
  Serious: Yes (Hospitalization)
  Sender: FDA-Public Use
  Company Number: None

PATIENT
  Age: 80 Year
  Sex: Female

DRUGS (2)
  1. PREGABALIN [Suspect]
     Active Substance: PREGABALIN
     Indication: Neuralgia
     Dosage: UNK
     Route: 065
     Dates: start: 202404, end: 202405
  2. SAROTENA [Concomitant]
     Dosage: UNK
     Route: 065
     Dates: start: 202404

REACTIONS (6)
  - Rales [Unknown]
  - Orthostatic hypotension [Unknown]
  - Rhonchi [Unknown]
  - Bundle branch block right [Unknown]
  - Fall [Unknown]
  - Cough [Unknown]

NARRATIVE: CASE EVENT DATE: 20240415
